FAERS Safety Report 8342702-0 (Version None)
Quarter: 2012Q2

REPORT INFORMATION
  Report Type: 
  Country: None (occurrence: None)
  Receive Date: 20120502
  Receipt Date: 20120417
  Transmission Date: 20120825
  Serious: Yes (Hospitalization, Other)
  Sender: FDA-Public Use
  Company Number: DSA_48957_2012

PATIENT
  Age: 86 Year
  Sex: Male

DRUGS (7)
  1. PL-GRANULES [Concomitant]
  2. UNSPECIFIED MEDICATION [Concomitant]
  3. DEXAMETHASONE ACETATE [Concomitant]
  4. LEVOFLOXACIN [Concomitant]
  5. ISODINE [Concomitant]
  6. ENALAPRIL MALEATE [Suspect]
     Indication: HYPERTENSION
     Dosage: (5 MG, DAILY ORAL)
     Route: 048
     Dates: start: 20040223, end: 20120105
  7. ETHINYL ESTRADIOL [Concomitant]

REACTIONS (3)
  - NASOPHARYNGITIS [None]
  - ANGIOEDEMA [None]
  - ATTENTION-SEEKING BEHAVIOUR [None]
